FAERS Safety Report 18045451 (Version 2)
Quarter: 2020Q3

REPORT INFORMATION
  Report Type: Spontaneous
  Country: US (occurrence: US)
  Receive Date: 20200720
  Receipt Date: 20200928
  Transmission Date: 20201103
  Serious: No
  Sender: FDA-Public Use
  Company Number: US-PFIZER INC-2019311851

PATIENT
  Age: 69 Year

DRUGS (2)
  1. FLECTOR [Suspect]
     Active Substance: DICLOFENAC EPOLAMINE
     Dosage: 2 DF, DAILY, [2 PATCH TOPICALLY DAILY]
     Route: 061
  2. FLECTOR [Suspect]
     Active Substance: DICLOFENAC EPOLAMINE
     Dosage: 2 DF, 2X/DAY(APPLY 2 PATCHES Q12 HR/4 IN A 24 HOUR PERIOD)
     Route: 061

REACTIONS (2)
  - Pain [Unknown]
  - Off label use [Unknown]
